FAERS Safety Report 21391893 (Version 5)
Quarter: 2023Q1

REPORT INFORMATION
  Report Type: Spontaneous
  Country: JP (occurrence: JP)
  Receive Date: 20220929
  Receipt Date: 20230308
  Transmission Date: 20230417
  Serious: Yes (Disabling)
  Sender: FDA-Public Use
  Company Number: JP-Eisai Medical Research-EC-2022-124426

PATIENT
  Age: 66 Year
  Sex: Male

DRUGS (11)
  1. LENVIMA [Suspect]
     Active Substance: LENVATINIB
     Indication: Thyroid cancer
     Route: 048
     Dates: start: 201604
  2. LENVIMA [Suspect]
     Active Substance: LENVATINIB
     Route: 048
     Dates: end: 2019
  3. LENVIMA [Suspect]
     Active Substance: LENVATINIB
     Route: 048
     Dates: start: 2019, end: 20190619
  4. LENVIMA [Suspect]
     Active Substance: LENVATINIB
     Route: 048
     Dates: start: 20190620, end: 20190822
  5. LENVIMA [Suspect]
     Active Substance: LENVATINIB
     Route: 048
     Dates: start: 202006, end: 202008
  6. LENVIMA [Suspect]
     Active Substance: LENVATINIB
     Dosage: 2 WEEKS-ON/1 WEEK-OFF SCHEDULE
     Route: 048
     Dates: start: 202102, end: 202102
  7. LENVIMA [Suspect]
     Active Substance: LENVATINIB
     Dosage: 2 WEEKS-ON/2 WEEKS-OFF SCHEDULE
     Route: 048
     Dates: start: 202102, end: 202210
  8. LENVIMA [Suspect]
     Active Substance: LENVATINIB
     Dosage: 2 WEEKS-ON/2 WEEKS-OFF SCHEDULE
     Route: 048
     Dates: start: 202210, end: 202211
  9. LENVIMA [Suspect]
     Active Substance: LENVATINIB
     Dosage: 2 WEEKS-ON/2 WEEKS-OFF SCHEDULE
     Route: 048
     Dates: start: 202211
  10. LEVOTHYROXINE SODIUM [Concomitant]
     Active Substance: LEVOTHYROXINE SODIUM
     Indication: Hypothyroidism
     Route: 048
  11. AMLODIPINE BESYLATE [Concomitant]
     Active Substance: AMLODIPINE BESYLATE
     Indication: Hypertension
     Route: 048

REACTIONS (1)
  - Nephrotic syndrome [Recovering/Resolving]

NARRATIVE: CASE EVENT DATE: 20190101
